FAERS Safety Report 21225674 (Version 2)
Quarter: 2022Q3

REPORT INFORMATION
  Report Type: Spontaneous
  Country: BR (occurrence: BR)
  Receive Date: 20220818
  Receipt Date: 20220819
  Transmission Date: 20221027
  Serious: Yes (Disabling, Other)
  Sender: FDA-Public Use
  Company Number: BR-CELLTRION INC.-2022BR013147

PATIENT

DRUGS (8)
  1. INFLIXIMAB [Suspect]
     Active Substance: INFLIXIMAB
     Indication: Rheumatoid arthritis
     Dosage: 210 MG EVERY 8 WEEKS
     Route: 042
  2. DIOVAN [Concomitant]
     Active Substance: VALSARTAN
     Indication: Hypertension
     Dosage: 150MG 1 PILL PER DAY, STARTED 10 YEARS AGO
     Route: 048
  3. AMIODARONE HYDROCHLORIDE [Concomitant]
     Active Substance: AMIODARONE HYDROCHLORIDE
     Indication: Hypertension
     Dosage: 100 MG 1 PILL PER DAY, STARTED 5 YEARS AGO
     Route: 048
  4. MACRODANTIN [Concomitant]
     Active Substance: NITROFURANTOIN
     Indication: Urinary tract infection
     Dosage: 100 MG 1PILL PER DAY, STARTED 3 YEARS AGO
     Route: 048
  5. KETOPROFEN [Concomitant]
     Active Substance: KETOPROFEN
     Indication: Arthralgia
     Dosage: 6 MG 1 PILL PER DAY
     Route: 048
     Dates: start: 202206
  6. DEFLAZACORT [Concomitant]
     Active Substance: DEFLAZACORT
     Indication: Pain
     Dosage: 15 MG HALF PILL PER DAY
     Route: 048
     Dates: start: 202202
  7. BROMAZEPAM [Concomitant]
     Active Substance: BROMAZEPAM
     Indication: Sleep disorder
     Dosage: 6 MG 1 PILL PER DAY, STARTED 15 YEARS AGO
     Route: 048
  8. ACTONEL [Concomitant]
     Active Substance: RISEDRONATE SODIUM
     Indication: Bone disorder
     Dosage: 150 MG 1 PILL PER MONTH, STARTED 2 YEARS AGO
     Route: 048

REACTIONS (7)
  - Gait inability [Unknown]
  - Pain [Unknown]
  - Pain in extremity [Not Recovered/Not Resolved]
  - Nervousness [Unknown]
  - Insomnia [Not Recovered/Not Resolved]
  - Treatment delayed [Unknown]
  - Prescribed overdose [Unknown]

NARRATIVE: CASE EVENT DATE: 20220201
